FAERS Safety Report 18412956 (Version 1)
Quarter: 2020Q4

REPORT INFORMATION
  Report Type: Report from Study
  Country: None (occurrence: US)
  Receive Date: 20201022
  Receipt Date: 20201022
  Transmission Date: 20210114
  Serious: Yes (Hospitalization)
  Sender: FDA-Public Use
  Company Number: US-ABBVIE-20K-163-3615647-00

PATIENT
  Sex: Female

DRUGS (4)
  1. CEFADROXIL. [Concomitant]
     Active Substance: CEFADROXIL
     Indication: FALL
  2. ACETAMINOPHENE [Concomitant]
     Active Substance: ACETAMINOPHEN
     Indication: FALL
  3. DUOPA [Suspect]
     Active Substance: CARBIDOPA\LEVODOPA
  4. DUOPA [Suspect]
     Active Substance: CARBIDOPA\LEVODOPA
     Indication: PRODUCT USED FOR UNKNOWN INDICATION
     Route: 050

REACTIONS (2)
  - Wrist fracture [Unknown]
  - Fall [Unknown]

NARRATIVE: CASE EVENT DATE: 20201008
